FAERS Safety Report 11047029 (Version 1)
Quarter: 2015Q2

REPORT INFORMATION
  Report Type: Report from Study
  Country: US (occurrence: US)
  Receive Date: 20150420
  Receipt Date: 20150420
  Transmission Date: 20150821
  Serious: Yes (Hospitalization, Other)
  Sender: FDA-Public Use
  Company Number: US-SA-2015SA047590

PATIENT
  Age: 73 Year
  Sex: Male

DRUGS (4)
  1. LANTUS SOLOSTAR [Suspect]
     Active Substance: INSULIN GLARGINE
     Indication: TYPE 2 DIABETES MELLITUS
     Dosage: DOSE:34 UNIT(S)
     Route: 065
     Dates: start: 2011
  2. CORTICOSTEROID NOS [Concomitant]
     Active Substance: CORTICOSTEROID NOS
  3. SOLOSTAR [Concomitant]
     Active Substance: DEVICE
     Dosage: DOSE:34 UNIT(S)
     Dates: start: 2011
  4. PREDNISONE. [Concomitant]
     Active Substance: PREDNISONE

REACTIONS (14)
  - Skin discolouration [Unknown]
  - Skin odour abnormal [Unknown]
  - Wheelchair user [Unknown]
  - Unevaluable event [Unknown]
  - Bronchitis [Unknown]
  - Hypoaesthesia [Unknown]
  - Cardiac pacemaker insertion [Unknown]
  - Stent placement [Unknown]
  - Pneumonia [Unknown]
  - Gangrene [Unknown]
  - Body temperature increased [Unknown]
  - Brain neoplasm [Unknown]
  - Toe amputation [Unknown]
  - Blood glucose increased [Unknown]

NARRATIVE: CASE EVENT DATE: 2014
